FAERS Safety Report 8885003 (Version 2)
Quarter: 2013Q1

REPORT INFORMATION
  Report Type: Report from Study
  Country: US (occurrence: US)
  Receive Date: 20121102
  Receipt Date: 20130211
  Transmission Date: 20140127
  Serious: Yes (Hospitalization)
  Sender: FDA-Public Use
  Company Number: US-ABBOTT-12P-163-1000493-00

PATIENT
  Sex: Female
  Weight: 84.9 kg

DRUGS (6)
  1. HUMIRA [Suspect]
     Indication: RHEUMATOID ARTHRITIS
     Route: 058
     Dates: start: 2008, end: 2010
  2. METHOTREXATE [Suspect]
     Indication: RHEUMATOID ARTHRITIS
     Dates: end: 2010
  3. METHOTREXATE [Suspect]
     Dates: start: 201208
  4. PREDNISONE [Suspect]
     Indication: RHEUMATOID ARTHRITIS
     Dates: end: 2010
  5. PREDNISONE [Suspect]
     Dates: start: 201208
  6. ADVIL [Concomitant]
     Indication: ARTHRALGIA

REACTIONS (7)
  - Abdominal distension [Recovering/Resolving]
  - Abdominal pain upper [Recovered/Resolved]
  - Uterine neoplasm [Recovered/Resolved]
  - Bladder injury [Recovered/Resolved]
  - Urogenital fistula [Recovered/Resolved]
  - Rheumatoid arthritis [Not Recovered/Not Resolved]
  - Arthralgia [Not Recovered/Not Resolved]
